FAERS Safety Report 13974368 (Version 2)
Quarter: 2017Q4

REPORT INFORMATION
  Report Type: Spontaneous
  Country: PT (occurrence: PT)
  Receive Date: 20170915
  Receipt Date: 20171010
  Transmission Date: 20180321
  Serious: Yes (Other)
  Sender: FDA-Public Use
  Company Number: PT-ROCHE-1989176

PATIENT
  Age: 63 Year
  Sex: Female
  Weight: 69 kg

DRUGS (14)
  1. TRASTUZUMAB. [Suspect]
     Active Substance: TRASTUZUMAB
     Indication: BREAST CANCER
     Route: 042
     Dates: start: 20170504, end: 20170504
  2. PACLITAXEL. [Suspect]
     Active Substance: PACLITAXEL
     Indication: BREAST CANCER
     Route: 042
     Dates: start: 20170623
  3. NEUROBION [Concomitant]
     Active Substance: CYANOCOBALAMIN\PYRIDOXINE\THIAMINE
     Dosage: 6 TABLETS PER DAY
     Route: 065
  4. PERTUZUMAB. [Suspect]
     Active Substance: PERTUZUMAB
     Route: 042
     Dates: start: 20170623
  5. TRASTUZUMAB. [Suspect]
     Active Substance: TRASTUZUMAB
     Route: 042
     Dates: start: 20170623
  6. DOCETAXEL. [Suspect]
     Active Substance: DOCETAXEL
     Indication: BREAST CANCER
     Route: 042
     Dates: start: 20170504
  7. METFORMIN [Suspect]
     Active Substance: METFORMIN HYDROCHLORIDE
     Indication: PRODUCT USED FOR UNKNOWN INDICATION
     Dosage: 1 LUNCH
     Route: 065
  8. PREGABALIN. [Concomitant]
     Active Substance: PREGABALIN
     Dosage: 0+0+1
     Route: 065
  9. ATORVASTATIN [Concomitant]
     Active Substance: ATORVASTATIN
     Dosage: 0+0+1
     Route: 065
  10. HUMALOG [Concomitant]
     Active Substance: INSULIN LISPRO
  11. NIFEDIPINE CR [Concomitant]
     Active Substance: NIFEDIPINE
     Dosage: 1+0+0
     Route: 065
  12. ENALAPRIL/HCT [Concomitant]
     Dosage: 1+0+0
     Route: 065
  13. PERTUZUMAB. [Suspect]
     Active Substance: PERTUZUMAB
     Indication: BREAST CANCER
     Route: 042
     Dates: start: 20170503, end: 20170503
  14. METFORMIN [Suspect]
     Active Substance: METFORMIN HYDROCHLORIDE
     Indication: PRODUCT USED FOR UNKNOWN INDICATION
     Dosage: 1+0+1
     Route: 065

REACTIONS (10)
  - Nephropathy toxic [Recovered/Resolved]
  - Hypovolaemia [Unknown]
  - Dehydration [Unknown]
  - Drug hypersensitivity [Unknown]
  - Diarrhoea [Recovered/Resolved]
  - Acute kidney injury [Unknown]
  - Diabetic nephropathy [Unknown]
  - Nephritis allergic [Unknown]
  - Renal tubular necrosis [Unknown]
  - Pyrexia [Recovered/Resolved]
